FAERS Safety Report 5180844-1 (Version None)
Quarter: 2006Q4

REPORT INFORMATION
  Report Type: 
  Country: None (occurrence: None)
  Receive Date: 20061219
  Receipt Date: 20060830
  Transmission Date: 20070319
  Serious: No
  Sender: FDA-Public Use
  Company Number: US-AMGEN-KDL191752

PATIENT
  Sex: Female

DRUGS (2)
  1. ENBREL [Suspect]
     Indication: ANKYLOSING SPONDYLITIS
     Route: 058
  2. UNKNOWN [Suspect]

REACTIONS (4)
  - ARTHROPATHY [None]
  - LUMBAR SPINAL STENOSIS [None]
  - MIGRAINE [None]
  - STRESS FRACTURE [None]
